FAERS Safety Report 9111596 (Version 1)
Quarter: 2013Q1

REPORT INFORMATION
  Report Type: Spontaneous
  Country: US (occurrence: US)
  Receive Date: 20130219
  Receipt Date: 20130219
  Transmission Date: 20140127
  Serious: Yes (Other)
  Sender: FDA-Public Use
  Company Number: US-BRISTOL-MYERS SQUIBB COMPANY-16660102

PATIENT
  Age: 54 Year
  Sex: Female

DRUGS (11)
  1. ORENCIA [Suspect]
     Indication: RHEUMATOID ARTHRITIS
     Dosage: LAST INFUSION 18MAY2012.
     Route: 042
     Dates: start: 20120319, end: 20120518
  2. PLAQUENIL [Suspect]
     Indication: RHEUMATOID ARTHRITIS
     Route: 048
     Dates: start: 20120213
  3. NASONEX [Concomitant]
     Dosage: 1DF=50MCG/ACTUATION, NON AEROSOL
     Route: 045
     Dates: start: 20120330
  4. OXYGEN [Concomitant]
     Dosage: WITH SLEEP VIA NASAL CANNULA
     Route: 045
     Dates: start: 20120309
  5. PREDNISONE [Concomitant]
     Indication: RHEUMATOID ARTHRITIS
     Route: 048
     Dates: start: 20120213
  6. SYMBICORT [Concomitant]
     Dosage: 1DF=160-4.5MCG/ACTUATION HFA AEROSOL?2 PUFFS
     Route: 055
     Dates: start: 20100727
  7. PROAIR HFA [Concomitant]
     Dosage: 1DF=2 PUFFS?Q4-Q6 PRN
     Route: 055
     Dates: start: 20100727
  8. HYDROCODONE + ACETAMINOPHEN [Concomitant]
     Dosage: 1DF=7.5-500MG TAB
     Route: 048
     Dates: start: 20100727
  9. SPIRIVA [Concomitant]
     Indication: LUNG DISORDER
     Route: 055
     Dates: start: 20101025
  10. ALBUTEROL SULFATE [Concomitant]
     Dosage: 1DF=2.5MG/3ML OR 0.083%?SOLN FOR NEBULIZATION
     Route: 055
     Dates: start: 20100727
  11. LEVOTHYROXINE [Concomitant]
     Dosage: TAB
     Route: 048
     Dates: start: 20100727

REACTIONS (4)
  - Chronic obstructive pulmonary disease [Unknown]
  - Alopecia [Unknown]
  - Fatigue [Unknown]
  - Pain in extremity [Unknown]
